FAERS Safety Report 14304813 (Version 1)
Quarter: 2017Q4

REPORT INFORMATION
  Report Type: Spontaneous
  Country: JP (occurrence: JP)
  Receive Date: 20171219
  Receipt Date: 20171219
  Transmission Date: 20180321
  Serious: Yes (Hospitalization, Other)
  Sender: FDA-Public Use
  Company Number: JP-OTSUKA-004768

PATIENT
  Age: 50 Year
  Sex: Female

DRUGS (18)
  1. LITHIUM CARBONATE. [Concomitant]
     Active Substance: LITHIUM CARBONATE
     Dosage: 800 MG, QD
     Route: 048
     Dates: start: 2006, end: 20081007
  2. NORVASC [Concomitant]
     Active Substance: AMLODIPINE BESYLATE
     Dosage: 5 MG, QD
     Route: 048
     Dates: start: 2006, end: 20081007
  3. MEILAX [Concomitant]
     Active Substance: ETHYL LOFLAZEPATE
     Dosage: 2 MG, QD
     Route: 048
     Dates: start: 2006, end: 20081007
  4. ZOPICLONE [Concomitant]
     Active Substance: ZOPICLONE
     Dosage: FORMULATION: TAB
     Dates: end: 20081007
  5. ABILIFY [Suspect]
     Active Substance: ARIPIPRAZOLE
     Indication: PSYCHOTIC DISORDER
     Dosage: 12 MG, QD
     Route: 048
     Dates: start: 20060823, end: 20061017
  6. RISPERIDONE. [Suspect]
     Active Substance: RISPERIDONE
     Dosage: 2006-22AUG06:8MG QD   23AUG06-18NOV06:4MG QD 88DAYS  19NOV06-07OCT08:6MG QD 689DAYS
     Route: 048
     Dates: start: 2006, end: 20081007
  7. AKINETON [Concomitant]
     Active Substance: BIPERIDEN HYDROCHLORIDE
     Dosage: 4 MG, QD
     Route: 048
     Dates: start: 2006, end: 20081007
  8. ABILIFY [Suspect]
     Active Substance: ARIPIPRAZOLE
     Dosage: 24 MG, QD
     Route: 048
     Dates: start: 20061018, end: 20081007
  9. DEPAKENE [Concomitant]
     Active Substance: VALPROIC ACID
     Dosage: DEPAKENE-R  FORMULATION: TAB EXTENDED RELEASE,ER
     Dates: end: 20081007
  10. RISPERDAL [Suspect]
     Active Substance: RISPERIDONE
     Dosage: 4 MG, QD
     Route: 048
     Dates: start: 20060823, end: 20061118
  11. NEULEPTIL [Concomitant]
     Active Substance: PERICIAZINE
     Dosage: 10 MG, QD
     Route: 048
     Dates: start: 2006, end: 20081007
  12. ROHYPNOL [Concomitant]
     Active Substance: FLUNITRAZEPAM
     Dosage: 1 MG, QD
     Route: 048
     Dates: start: 2006, end: 20081007
  13. AMOBAN [Concomitant]
     Active Substance: ZOPICLONE
     Dosage: 7.5 MG, QD
     Route: 048
     Dates: start: 2006, end: 20081007
  14. DEPAKENE [Concomitant]
     Active Substance: VALPROIC ACID
     Dosage: 400 MG, QD
     Route: 048
     Dates: start: 2006, end: 20081007
  15. FLUNITRAZEPAM [Concomitant]
     Active Substance: FLUNITRAZEPAM
     Dosage: FORMULATION: TAB
     Dates: end: 20081007
  16. RISPERDAL [Suspect]
     Active Substance: RISPERIDONE
     Dosage: 8 MG, QD
     Route: 048
     Dates: start: 2006, end: 20060822
  17. RISPERDAL [Suspect]
     Active Substance: RISPERIDONE
     Dosage: 6 MG, QD
     Route: 048
     Dates: start: 20061119, end: 20081007
  18. TRANDOLAPRIL. [Concomitant]
     Active Substance: TRANDOLAPRIL
     Dosage: 1 MG, QD
     Route: 048
     Dates: start: 2006, end: 20081007

REACTIONS (2)
  - Cholecystitis [Unknown]
  - Neuroleptic malignant syndrome [Recovering/Resolving]

NARRATIVE: CASE EVENT DATE: 20081007
